FAERS Safety Report 7594601-X (Version None)
Quarter: 2011Q3

REPORT INFORMATION
  Report Type: 
  Country: None (occurrence: None)
  Receive Date: 20110707
  Receipt Date: 20110624
  Transmission Date: 20111222
  Serious: Yes (Hospitalization)
  Sender: FDA-Public Use
  Company Number: US-AMGEN-USACT2011032275

PATIENT
  Sex: Female

DRUGS (5)
  1. LAPATINIB [Concomitant]
     Indication: BREAST CANCER
     Dosage: 750 MG, QD
     Route: 048
     Dates: start: 20110505
  2. CARBOPLATIN [Concomitant]
     Indication: BREAST CANCER
     Dosage: 1000 MG, QD
     Dates: start: 20110505
  3. DOCETAXEL [Concomitant]
     Indication: BREAST CANCER
     Dosage: 75 MG/M2, Q3WK
     Route: 042
     Dates: start: 20110505
  4. PEGFILGRASTIM [Suspect]
     Indication: BREAST CANCER
  5. TRASTUZUMAB [Concomitant]
     Indication: BREAST CANCER
     Dosage: UNK
     Dates: start: 20110505

REACTIONS (4)
  - FEBRILE NEUTROPENIA [None]
  - DIARRHOEA [None]
  - HYPOTENSION [None]
  - LEUKOPENIA [None]
